FAERS Safety Report 17729494 (Version 1)
Quarter: 2020Q2

REPORT INFORMATION
  Report Type: Spontaneous
  Country: US (occurrence: US)
  Receive Date: 20200430
  Receipt Date: 20200430
  Transmission Date: 20200714
  Serious: Yes (Hospitalization)
  Sender: FDA-Public Use
  Company Number: None

PATIENT
  Age: 67 Year
  Sex: Female
  Weight: 59.6 kg

DRUGS (7)
  1. PACLITAXEL. [Suspect]
     Active Substance: PACLITAXEL
     Indication: BREAST CANCER
     Dosage: ?          OTHER FREQUENCY:ONCE;?
     Route: 041
     Dates: start: 20200421, end: 20200421
  2. ALOXI  250MG [Concomitant]
     Dates: start: 20200421, end: 20200421
  3. PACLITAXEL. [Suspect]
     Active Substance: PACLITAXEL
     Indication: LUNG NEOPLASM MALIGNANT
     Dosage: ?          OTHER FREQUENCY:ONCE;?
     Route: 041
     Dates: start: 20200421, end: 20200421
  4. DEXAMETHASONE 12MG IV [Concomitant]
     Dates: start: 20200421, end: 20200421
  5. DIPHENHYDRAMINE 25MG [Concomitant]
     Active Substance: DIPHENHYDRAMINE
     Dates: start: 20200421, end: 20200421
  6. CINVANTI 130MG IV [Concomitant]
     Dates: start: 20200421, end: 20200421
  7. PEPCID 20MG IV [Concomitant]
     Dates: start: 20200421, end: 20200421

REACTIONS (9)
  - Dyspnoea [None]
  - Hyperhidrosis [None]
  - Flushing [None]
  - Pain in jaw [None]
  - Nausea [None]
  - Lethargy [None]
  - Headache [None]
  - Abdominal pain [None]
  - Infusion related reaction [None]

NARRATIVE: CASE EVENT DATE: 20200421
